FAERS Safety Report 21984530 (Version 1)
Quarter: 2023Q1

REPORT INFORMATION
  Report Type: Spontaneous
  Country: US (occurrence: US)
  Receive Date: 20230213
  Receipt Date: 20230213
  Transmission Date: 20230418
  Serious: Yes (Other)
  Sender: FDA-Public Use
  Company Number: US-MYLANLABS-2023M1013583

PATIENT
  Age: 18 Year
  Sex: Male

DRUGS (1)
  1. METOLAZONE [Suspect]
     Active Substance: METOLAZONE
     Indication: Focal segmental glomerulosclerosis
     Dosage: UNK
     Route: 065

REACTIONS (2)
  - Drug reaction with eosinophilia and systemic symptoms [Recovering/Resolving]
  - Acute kidney injury [Recovering/Resolving]
